FAERS Safety Report 4305833-8 (Version None)
Quarter: 2004Q1

REPORT INFORMATION
  Report Type: 
  Country: None (occurrence: None)
  Receive Date: 20040225
  Receipt Date: 20040209
  Transmission Date: 20041129
  Serious: Yes (Hospitalization)
  Sender: FDA-Public Use
  Company Number: F01200400240

PATIENT
  Age: 78 Year
  Sex: Male

DRUGS (2)
  1. ARIXTRA [Suspect]
     Dosage: SUBCUTANEOUS
     Route: 058
     Dates: start: 20030725, end: 20030802
  2. ASPIRIN [Concomitant]

REACTIONS (3)
  - ATRIAL FIBRILLATION [None]
  - PNEUMONIA [None]
  - POST PROCEDURAL COMPLICATION [None]
